FAERS Safety Report 13055017 (Version 1)
Quarter: 2016Q4

REPORT INFORMATION
  Report Type: Spontaneous
  Country: DE (occurrence: DE)
  Receive Date: 20161222
  Receipt Date: 20161222
  Transmission Date: 20170207
  Serious: Yes (Hospitalization)
  Sender: FDA-Public Use
  Company Number: DE-BION-005820

PATIENT
  Age: 42 Year
  Sex: Male

DRUGS (7)
  1. FLUPENTIXOL/FLUPENTIXOL DECANOATE/FLUPENTIXOL DIHYDROCHLORIDE [Interacting]
     Active Substance: FLUPENTIXOL
     Indication: MAJOR DEPRESSION
  2. CLOMIPRAMINE [Interacting]
     Active Substance: CLOMIPRAMINE
     Indication: MAJOR DEPRESSION
  3. AMITRIPTYLINE [Concomitant]
     Active Substance: AMITRIPTYLINE
     Indication: MAJOR DEPRESSION
  4. MIRTAZAPINE. [Interacting]
     Active Substance: MIRTAZAPINE
     Indication: MAJOR DEPRESSION
  5. LITHIUM. [Interacting]
     Active Substance: LITHIUM
     Indication: MAJOR DEPRESSION
  6. RISPERIDONE. [Interacting]
     Active Substance: RISPERIDONE
     Indication: MAJOR DEPRESSION
     Dosage: INCREASED DOSAGE TO 4 MG/DAY
  7. VALPROIC ACID. [Suspect]
     Active Substance: VALPROIC ACID
     Indication: MAJOR DEPRESSION
     Dosage: DAY 1, 500 MG; DAY 2, 1000 MG; DAY 3 AND THEREAFTER, 2000 MG CORRESPONDING TO 20 MG/KG

REACTIONS (2)
  - Encephalopathy [Recovered/Resolved]
  - Drug interaction [Unknown]
